FAERS Safety Report 9257875 (Version 2)
Quarter: 2013Q2

REPORT INFORMATION
  Report Type: Spontaneous
  Country: US (occurrence: US)
  Receive Date: 20130426
  Receipt Date: 20130513
  Transmission Date: 20140414
  Serious: Yes (Other)
  Sender: FDA-Public Use
  Company Number: US-BAYER-2013-051836

PATIENT
  Age: 22 Year
  Sex: Male

DRUGS (1)
  1. HELIXATE FS [Suspect]
     Indication: FACTOR VIII DEFICIENCY

REACTIONS (4)
  - Synovectomy [Unknown]
  - Synovectomy [Unknown]
  - Central venous catheterisation [Unknown]
  - Central venous catheter removal [Unknown]
